FAERS Safety Report 10515617 (Version 1)
Quarter: 2014Q4

REPORT INFORMATION
  Report Type: Spontaneous
  Country: US (occurrence: None)
  Receive Date: 20141009
  Receipt Date: 20141009
  Transmission Date: 20150528
  Serious: Yes (Hospitalization)
  Sender: FDA-Public Use
  Company Number: 201409202

PATIENT
  Sex: Male

DRUGS (2)
  1. TESTIM [Suspect]
     Active Substance: TESTOSTERONE
     Indication: BLOOD TESTOSTERONE DECREASED
     Route: 062
     Dates: start: 2012, end: 20140927
  2. ANDROGEL [Suspect]
     Active Substance: TESTOSTERONE
     Indication: BLOOD TESTOSTERONE DECREASED
     Route: 061
     Dates: start: 201201, end: 201209

REACTIONS (7)
  - Atrial flutter [None]
  - Pain [None]
  - Unevaluable event [None]
  - Mental impairment [None]
  - Atrial fibrillation [None]
  - Economic problem [None]
  - Injury [None]

NARRATIVE: CASE EVENT DATE: 20120926
